FAERS Safety Report 7123158-2 (Version None)
Quarter: 2010Q4

REPORT INFORMATION
  Report Type: 
  Country: None (occurrence: None)
  Receive Date: 20101125
  Receipt Date: 20101115
  Transmission Date: 20110411
  Serious: No
  Sender: FDA-Public Use
  Company Number: US-BIOGENIDEC-2010BI040205

PATIENT
  Age: 34 Year
  Sex: Male

DRUGS (4)
  1. TYSABRI [Suspect]
     Indication: MULTIPLE SCLEROSIS
     Route: 042
     Dates: start: 20100915
  2. LORATADINE [Concomitant]
     Indication: PREMEDICATION
     Route: 048
     Dates: start: 20100915
  3. ZOFRAN [Concomitant]
     Indication: PREMEDICATION
     Route: 048
     Dates: start: 20100915
  4. IBUPROFEN [Concomitant]
     Indication: PREMEDICATION
     Route: 048
     Dates: start: 20100915

REACTIONS (3)
  - CHILLS [None]
  - PRURITUS [None]
  - SOMNOLENCE [None]
